FAERS Safety Report 6663803-9 (Version None)
Quarter: 2010Q1

REPORT INFORMATION
  Report Type: 
  Country: None (occurrence: None)
  Receive Date: 20100325
  Receipt Date: 20091123
  Transmission Date: 20100710
  Serious: No
  Sender: FDA-Public Use
  Company Number: 2009-00762

PATIENT
  Age: 80 Year
  Sex: Female
  Weight: 83.9154 kg

DRUGS (11)
  1. COLD REMEDY PLUS LIQUI-LOZ [Suspect]
     Dosage: Q 3-4 HOURS
     Dates: start: 20091120, end: 20091123
  2. COUMADIN [Concomitant]
  3. ALLOPURINOL [Concomitant]
  4. DIGOXIN [Concomitant]
  5. GLIPIZIDE [Concomitant]
  6. ACTOS [Concomitant]
  7. SINGULAIR [Concomitant]
  8. DILTIAZEM HCL [Concomitant]
  9. AVAPRO [Concomitant]
  10. MULTI-VITAMIN [Concomitant]
  11. VIT C WITH BIOFLAVONOIDS [Concomitant]

REACTIONS (1)
  - AGEUSIA [None]
